FAERS Safety Report 8713077 (Version 2)
Quarter: 2012Q4

REPORT INFORMATION
  Report Type: 
  Country: US (occurrence: US)
  Receive Date: 20120808
  Receipt Date: 20120910
  Transmission Date: 20130627
  Serious: Yes (Other)
  Sender: FDA-Public Use
  Company Number: US-PFIZER INC-2012191091

PATIENT
  Age: 73 Year
  Sex: Female
  Weight: 108 kg

DRUGS (22)
  1. CHANTIX [Suspect]
     Indication: SMOKING CESSATION THERAPY
     Dosage: As per starter pack
     Route: 048
     Dates: start: 20120608, end: 2012
  2. CHANTIX [Suspect]
     Dosage: 1 mg, 2x/day
     Route: 048
     Dates: start: 2012, end: 20120803
  3. BUSPIRONE [Concomitant]
     Dosage: 10 mg, 2x/day
  4. OMEPRAZOLE [Concomitant]
     Dosage: 20 mg, UNK
  5. OMEPRAZOLE [Concomitant]
     Dosage: 40 mg, 1x/day
  6. BUDESONIDE [Concomitant]
     Dosage: 3 mg, 3x/day
  7. ROPINIROLE [Concomitant]
     Dosage: 3 mg, 4x/day
  8. ROPINIROLE [Concomitant]
     Dosage: 1 mg, 2x/day
  9. GABAPENTIN [Concomitant]
     Dosage: 600 mg, 3x/day
  10. VALACICLOVIR [Concomitant]
     Dosage: 500 mg, 2x/day
  11. ALPRAZOLAM [Concomitant]
     Dosage: 0.5 mg, 2x/day
  12. ALPRAZOLAM [Concomitant]
     Dosage: 0.5 mg, 3x/day
  13. ETRAVIRINE [Concomitant]
     Dosage: 4 mg, as needed
  14. BETAMETHASONE DIPROPIONATE [Concomitant]
  15. BUSPIRONE HYDROCHLORIDE [Concomitant]
     Dosage: 10 mg, 2x/day
  16. CLOTRASON [Concomitant]
  17. CYMBALTA [Concomitant]
     Dosage: 30 mg, 3x/day
  18. ENTOCORT EC [Concomitant]
     Dosage: 3 mg, 3x/day
  19. PRIMIDONE [Concomitant]
     Dosage: 50 mg, 3x/day
  20. SEROQUEL [Concomitant]
     Dosage: 100 mg, 1x/day
  21. TIZANIDINE HYDROCHLORIDE [Concomitant]
     Dosage: 4 mg, 4x/day
  22. VALACICLOVIR HYDROCHLORIDE [Concomitant]
     Dosage: 500 mg, 2x/day

REACTIONS (13)
  - Dyspnoea [Unknown]
  - Oral mucosal blistering [Not Recovered/Not Resolved]
  - Oedema peripheral [Not Recovered/Not Resolved]
  - Intervertebral disc degeneration [Unknown]
  - Hyperaesthesia [Not Recovered/Not Resolved]
  - Arthritis [Not Recovered/Not Resolved]
  - Nausea [Not Recovered/Not Resolved]
  - Headache [Not Recovered/Not Resolved]
  - Insomnia [Not Recovered/Not Resolved]
  - Abnormal dreams [Not Recovered/Not Resolved]
  - Affect lability [Not Recovered/Not Resolved]
  - Anger [Not Recovered/Not Resolved]
  - Crying [Unknown]
